FAERS Safety Report 5028408-4 (Version None)
Quarter: 2006Q2

REPORT INFORMATION
  Report Type: 
  Country: None (occurrence: None)
  Receive Date: 20060617
  Receipt Date: 20060518
  Transmission Date: 20061013
  Serious: Yes (Hospitalization, Disabling, Other)
  Sender: FDA-Public Use
  Company Number: PHBS2006JP07611

PATIENT
  Sex: Female

DRUGS (2)
  1. TS 1 [Concomitant]
     Route: 065
     Dates: start: 20051129
  2. AREDIA [Suspect]
     Indication: METASTASES TO BONE
     Dosage: 90 MG
     Route: 042
     Dates: start: 20050107, end: 20060516

REACTIONS (4)
  - ADENOCARCINOMA [None]
  - HYPOAESTHESIA ORAL [None]
  - MOUTH HAEMORRHAGE [None]
  - SUTURE REMOVAL [None]
